FAERS Safety Report 20721439 (Version 1)
Quarter: 2022Q2

REPORT INFORMATION
  Report Type: Spontaneous
  Country: US (occurrence: None)
  Receive Date: 20220416
  Receipt Date: 20220416
  Transmission Date: 20220721
  Serious: No
  Sender: FDA-Public Use
  Company Number: None

PATIENT
  Age: 66 Year
  Sex: Male
  Weight: 87.75 kg

DRUGS (6)
  1. SULFAMETHOXAZOLE AND TRIMETHOPRIM [Suspect]
     Active Substance: SULFAMETHOXAZOLE\TRIMETHOPRIM
     Indication: Antibiotic prophylaxis
     Dosage: OTHER QUANTITY : 1 TABLET(S);?FREQUENCY : TWICE A DAY;?
     Route: 048
     Dates: start: 20220324, end: 20220325
  2. Dicyclomine 10 mg 1 [Concomitant]
  3. 1 x daily Tamsulosin 0.4 mg 1 [Concomitant]
  4. 1 x daily Amlodipipine 5 mg [Concomitant]
  5. Prostate health beta plus 2, 1 x daily [Concomitant]
  6. Melatonin as needed for sleep [Concomitant]

REACTIONS (8)
  - Nausea [None]
  - Muscle spasms [None]
  - Headache [None]
  - Malaise [None]
  - Influenza [None]
  - Dysuria [None]
  - Pain in extremity [None]
  - Myalgia [None]

NARRATIVE: CASE EVENT DATE: 20220326
